FAERS Safety Report 7761069-X (Version None)
Quarter: 2011Q3

REPORT INFORMATION
  Report Type: 
  Country: None (occurrence: None)
  Receive Date: 20110920
  Receipt Date: 20110909
  Transmission Date: 20111222
  Serious: Yes (Hospitalization, Other)
  Sender: FDA-Public Use
  Company Number: US-BAYER-2011-025722

PATIENT
  Age: 35 Year
  Sex: Female
  Weight: 86.168 kg

DRUGS (4)
  1. LEVOTHYROXINE SODIUM [Concomitant]
     Dosage: UNK
     Dates: start: 20050101
  2. NEXIUM [Concomitant]
     Dosage: UNK
     Dates: start: 20090401, end: 20090601
  3. YAZ [Suspect]
     Indication: CONTRACEPTION
     Dosage: UNK
     Dates: start: 20060601, end: 20090501
  4. THYROID MEDS [Concomitant]
     Dosage: UNK
     Dates: start: 20000101

REACTIONS (7)
  - GALLBLADDER DISORDER [None]
  - CHOLECYSTITIS CHRONIC [None]
  - EMOTIONAL DISTRESS [None]
  - INJURY [None]
  - CHOLELITHIASIS [None]
  - PAIN [None]
  - ANXIETY [None]
